FAERS Safety Report 24290523 (Version 1)
Quarter: 2024Q3

REPORT INFORMATION
  Report Type: Spontaneous
  Country: DE (occurrence: DE)
  Receive Date: 20240906
  Receipt Date: 20240906
  Transmission Date: 20241017
  Serious: Yes (Other)
  Sender: RANBAXY
  Company Number: DE-SUN PHARMACEUTICAL INDUSTRIES LTD-2024RR-466264

PATIENT
  Sex: Male

DRUGS (1)
  1. SERTRALINE [Suspect]
     Active Substance: SERTRALINE HYDROCHLORIDE
     Indication: Depression
     Dosage: UNK
     Route: 065
     Dates: start: 20240515, end: 20240531

REACTIONS (7)
  - Sexual dysfunction [Unknown]
  - Suicidal ideation [Unknown]
  - Erectile dysfunction [Unknown]
  - Genital hypoaesthesia [Unknown]
  - Sperm concentration decreased [Unknown]
  - Erectile dysfunction [Unknown]
  - Penile size reduced [Unknown]
